FAERS Safety Report 17130968 (Version 1)
Quarter: 2019Q4

REPORT INFORMATION
  Report Type: Spontaneous
  Country: US (occurrence: US)
  Receive Date: 20191209
  Receipt Date: 20191209
  Transmission Date: 20200122
  Serious: No
  Sender: FDA-Public Use
  Company Number: US-ROCHE-2296732

PATIENT
  Age: 51 Year
  Sex: Female

DRUGS (59)
  1. LAMOTRIGINE. [Concomitant]
     Active Substance: LAMOTRIGINE
     Indication: ANGER
     Route: 065
     Dates: start: 2010
  2. FISH OIL [Concomitant]
     Active Substance: FISH OIL
     Indication: ARTHRALGIA
  3. FISH OIL [Concomitant]
     Active Substance: FISH OIL
     Indication: OSTEOARTHRITIS
  4. HYDROCODONE BITARTRATE/ACETAMINOPHEN [Concomitant]
     Active Substance: ACETAMINOPHEN\HYDROCODONE BITARTRATE
     Indication: BACK PAIN
     Dosage: 5-325 MG
     Route: 065
     Dates: start: 2017
  5. HYDROCODONE BITARTRATE/ACETAMINOPHEN [Concomitant]
     Active Substance: ACETAMINOPHEN\HYDROCODONE BITARTRATE
     Indication: INTERVERTEBRAL DISC PROTRUSION
  6. RIZATRIPTAN BENZOATE. [Concomitant]
     Active Substance: RIZATRIPTAN BENZOATE
  7. METHOCARBAMOL. [Concomitant]
     Active Substance: METHOCARBAMOL
     Indication: MUSCLE SPASMS
  8. PANTOPRAZOLE SODIUM. [Concomitant]
     Active Substance: PANTOPRAZOLE SODIUM
     Indication: GASTROOESOPHAGEAL REFLUX DISEASE
     Route: 065
     Dates: start: 2018
  9. TYLENOL [Concomitant]
     Active Substance: ACETAMINOPHEN
     Indication: OSTEOARTHRITIS
  10. TURMERIC CURCUMIN GOLD [Concomitant]
     Indication: ARTHRITIS
     Dosage: AT NIGHT
     Route: 065
     Dates: start: 2017
  11. DIAZEPAM. [Suspect]
     Active Substance: DIAZEPAM
     Indication: ANXIETY
     Dosage: 2-3 TIMES PER DAY
     Route: 065
     Dates: start: 2008
  12. FISH OIL [Concomitant]
     Active Substance: FISH OIL
     Indication: MUSCULOSKELETAL STIFFNESS
     Dosage: IN THE MORNING
     Route: 065
     Dates: start: 2017
  13. HYDROCODONE BITARTRATE/ACETAMINOPHEN [Concomitant]
     Active Substance: ACETAMINOPHEN\HYDROCODONE BITARTRATE
     Indication: SPONDYLOLISTHESIS
  14. NASOCORT [Concomitant]
     Active Substance: BUDESONIDE
     Indication: SINUSITIS
     Dosage: 2 SPARYS IN THE MORINING
     Route: 045
  15. SYNTHROID [Concomitant]
     Active Substance: LEVOTHYROXINE SODIUM
     Indication: HYPOTHYROIDISM
     Dosage: FOR 6 DAYS IN A WEEK
     Route: 065
     Dates: start: 2013
  16. DIAZEPAM. [Suspect]
     Active Substance: DIAZEPAM
     Route: 065
     Dates: start: 201809
  17. CITRACAL-D [Concomitant]
     Active Substance: CALCIUM CITRATE\CHOLECALCIFEROL
     Indication: OSTEOPOROSIS PROPHYLAXIS
     Route: 065
     Dates: start: 2006
  18. FISH OIL [Concomitant]
     Active Substance: FISH OIL
     Indication: SWELLING
  19. FISH OIL [Concomitant]
     Active Substance: FISH OIL
     Indication: TENDERNESS
  20. ONDANSETRON [Concomitant]
     Active Substance: ONDANSETRON
     Indication: NAUSEA
     Route: 065
  21. OXYBUTYNIN. [Concomitant]
     Active Substance: OXYBUTYNIN CHLORIDE
     Dosage: AT NIGHT
     Route: 065
     Dates: start: 2012
  22. SYNTHROID [Concomitant]
     Active Substance: LEVOTHYROXINE SODIUM
     Dosage: ON MONDAY
     Route: 065
     Dates: start: 2013
  23. TYLENOL [Concomitant]
     Active Substance: ACETAMINOPHEN
     Indication: BACK PAIN
     Dosage: WITH TRAMADOL/HYDROCODONE
     Route: 065
     Dates: start: 2015
  24. LAMOTRIGINE. [Concomitant]
     Active Substance: LAMOTRIGINE
     Indication: AGGRESSION
  25. BEANO [Concomitant]
     Active Substance: ASPERGILLUS NIGER .ALPHA.-GALACTOSIDASE
     Dosage: 4-6 TIMES PER DAY WITH MEALS
     Route: 065
     Dates: start: 2012
  26. LORATADINE. [Concomitant]
     Active Substance: LORATADINE
     Indication: RHINORRHOEA
  27. METHOCARBAMOL. [Concomitant]
     Active Substance: METHOCARBAMOL
     Indication: SPONDYLOLISTHESIS
  28. PANTOPRAZOLE SODIUM. [Concomitant]
     Active Substance: PANTOPRAZOLE SODIUM
     Indication: GASTROOESOPHAGEAL REFLUX DISEASE
  29. TRIAMCINOLONE ACETONIDE. [Concomitant]
     Active Substance: TRIAMCINOLONE ACETONIDE
     Indication: PRURITUS
     Route: 065
  30. AZELASTINE. [Concomitant]
     Active Substance: AZELASTINE HYDROCHLORIDE
     Indication: SINUSITIS
     Route: 065
     Dates: start: 2010
  31. COLACE [Concomitant]
     Active Substance: DOCUSATE SODIUM
     Indication: CONSTIPATION PROPHYLAXIS
     Route: 065
     Dates: start: 2012
  32. MELOXICAM. [Concomitant]
     Active Substance: MELOXICAM
     Indication: ARTHRITIS
     Route: 065
     Dates: start: 2008
  33. METAMUCIL [Concomitant]
     Active Substance: PLANTAGO SEED
     Indication: CONSTIPATION
     Route: 065
     Dates: start: 2012
  34. MISOPROSTOL. [Concomitant]
     Active Substance: MISOPROSTOL
     Indication: GASTRIC ULCER
     Route: 065
     Dates: start: 2017
  35. ESOMEPRAZOLE. [Concomitant]
     Active Substance: ESOMEPRAZOLE MAGNESIUM
     Indication: GASTROOESOPHAGEAL REFLUX DISEASE
  36. PREVALITE [Concomitant]
     Active Substance: CHOLESTYRAMINE
     Dosage: 1 SPOON A DAY
     Route: 065
     Dates: start: 2016
  37. SCOPOLAMINE [HYOSCINE] [Concomitant]
     Active Substance: SCOPOLAMINE
     Indication: MOTION SICKNESS
     Route: 065
     Dates: start: 2017
  38. VITAMIN D3 [Concomitant]
     Active Substance: CHOLECALCIFEROL
     Route: 065
     Dates: start: 20100228
  39. AIMOVIG [Concomitant]
     Active Substance: ERENUMAB-AOOE
     Indication: MIGRAINE
     Dosage: 70 MG/ML
     Route: 065
     Dates: start: 20181119
  40. LAMOTRIGINE. [Concomitant]
     Active Substance: LAMOTRIGINE
     Indication: DEPRESSION
  41. FISH OIL [Concomitant]
     Active Substance: FISH OIL
     Indication: AMNESIA
  42. FLUOCINONIDE. [Concomitant]
     Active Substance: FLUOCINONIDE
     Indication: EAR PRURITUS
     Dosage: SMALL AMOUNT AFTER SHOWER
     Route: 065
     Dates: start: 2010
  43. LORATADINE. [Concomitant]
     Active Substance: LORATADINE
     Indication: HYPERSENSITIVITY
     Dosage: MORNING
     Route: 065
     Dates: start: 2005
  44. MECLIZINE [Concomitant]
     Active Substance: MECLIZINE HYDROCHLORIDE
  45. NASOCORT [Concomitant]
     Active Substance: BUDESONIDE
     Indication: HYPERSENSITIVITY
  46. PANTOPRAZOLE SODIUM. [Concomitant]
     Active Substance: PANTOPRAZOLE SODIUM
     Indication: GASTROOESOPHAGEAL REFLUX DISEASE
     Route: 065
     Dates: start: 2011, end: 2017
  47. TURMERIC CURCUMIN GOLD [Concomitant]
     Indication: DEPRESSION
  48. PRISTIQ EXTENDED-RELEASE [Concomitant]
     Active Substance: DESVENLAFAXINE SUCCINATE
     Route: 065
     Dates: start: 2018
  49. ARMODAFINIL. [Concomitant]
     Active Substance: ARMODAFINIL
     Indication: SLEEP APNOEA SYNDROME
     Dosage: IN THE MORNING
     Route: 065
  50. GAS-X [Concomitant]
     Active Substance: DIMETHICONE
     Indication: DYSPEPSIA
     Route: 065
     Dates: start: 2012
  51. MONISTAT VAGINAL CREAM [Concomitant]
     Indication: VULVOVAGINAL PRURITUS
     Route: 065
     Dates: start: 2016
  52. OXYBUTYNIN. [Concomitant]
     Active Substance: OXYBUTYNIN CHLORIDE
     Indication: INCONTINENCE
     Dosage: AT NIGHT
     Route: 065
     Dates: start: 2012
  53. PROBIOTICS NOS [Concomitant]
     Active Substance: PROBIOTICS NOS
     Dosage: MORNING
     Route: 065
     Dates: start: 2015
  54. PRISTIQ EXTENDED-RELEASE [Concomitant]
     Active Substance: DESVENLAFAXINE SUCCINATE
     Indication: DEPRESSION
     Route: 065
     Dates: start: 2008
  55. VITAMIN B12 [Concomitant]
     Active Substance: CYANOCOBALAMIN
     Route: 060
     Dates: start: 2005
  56. METHOCARBAMOL. [Concomitant]
     Active Substance: METHOCARBAMOL
     Indication: BACK PAIN
     Route: 065
     Dates: start: 2015
  57. ESOMEPRAZOLE. [Concomitant]
     Active Substance: ESOMEPRAZOLE MAGNESIUM
     Indication: ABDOMINAL PAIN UPPER
     Route: 065
     Dates: start: 2017
  58. PANTOPRAZOLE SODIUM. [Concomitant]
     Active Substance: PANTOPRAZOLE SODIUM
     Indication: DYSPEPSIA
  59. ROPINIROLE. [Concomitant]
     Active Substance: ROPINIROLE
     Indication: MUSCLE SPASMS
     Route: 065
     Dates: start: 2012

REACTIONS (4)
  - Dizziness [Not Recovered/Not Resolved]
  - Back pain [Not Recovered/Not Resolved]
  - Vertigo [Not Recovered/Not Resolved]
  - Bedridden [Not Recovered/Not Resolved]

NARRATIVE: CASE EVENT DATE: 201704
